FAERS Safety Report 6528564-2 (Version None)
Quarter: 2010Q1

REPORT INFORMATION
  Report Type: 
  Country: None (occurrence: None)
  Receive Date: 20100105
  Receipt Date: 20100105
  Transmission Date: 20100710
  Serious: Yes (Other)
  Sender: FDA-Public Use
  Company Number: None

PATIENT

DRUGS (1)
  1. DEXTROSE 5% AND SODIUM CHLORIDE 0.33% [Suspect]
     Indication: IMAGING PROCEDURE
     Dates: start: 20091214, end: 20091214

REACTIONS (5)
  - ANXIETY [None]
  - COUGH [None]
  - INCORRECT DRUG ADMINISTRATION RATE [None]
  - PRODUCT QUALITY ISSUE [None]
  - WHEEZING [None]
